FAERS Safety Report 5088091-9 (Version None)
Quarter: 2006Q3

REPORT INFORMATION
  Report Type: 
  Country: None (occurrence: None)
  Receive Date: 20060823
  Receipt Date: 20060823
  Transmission Date: 20061208
  Serious: Yes (Hospitalization)
  Sender: FDA-Public Use
  Company Number: None

PATIENT
  Age: 38 Year
  Sex: Male
  Weight: 73.0291 kg

DRUGS (1)
  1. ACETAZOLAMIDE [Suspect]
     Dosage: 250 MG QID

REACTIONS (2)
  - BLOOD GLUCOSE INCREASED [None]
  - METABOLIC ACIDOSIS [None]
